FAERS Safety Report 8827586 (Version 1)
Quarter: 2012Q4

REPORT INFORMATION
  Report Type: 
  Country: JP (occurrence: JP)
  Receive Date: 20121005
  Receipt Date: 20121005
  Transmission Date: 20130627
  Serious: Yes (Hospitalization)
  Sender: FDA-Public Use
  Company Number: JP-ROCHE-1068977

PATIENT
  Age: 41 Year
  Sex: Female
  Weight: 51 kg

DRUGS (5)
  1. AVASTIN [Suspect]
     Indication: BREAST CANCER METASTATIC
     Route: 041
     Dates: start: 20120322, end: 20120420
  2. PACLITAXEL [Suspect]
     Indication: BREAST CANCER METASTATIC
     Route: 041
     Dates: start: 20120322, end: 20120427
  3. GASTER [Concomitant]
     Route: 065
     Dates: start: 20120322, end: 20120427
  4. DECADRON [Concomitant]
     Route: 065
     Dates: start: 20120322, end: 20120427
  5. GRANISETRON [Concomitant]
     Route: 065
     Dates: start: 20120322, end: 20120427

REACTIONS (1)
  - Interstitial lung disease [Recovering/Resolving]
